FAERS Safety Report 5386053-5 (Version None)
Quarter: 2007Q3

REPORT INFORMATION
  Report Type: 
  Country: None (occurrence: None)
  Receive Date: 20070710
  Receipt Date: 20070419
  Transmission Date: 20080115
  Serious: Yes (Hospitalization)
  Sender: FDA-Public Use
  Company Number: 8024977

PATIENT
  Age: 30 Year
  Sex: Female

DRUGS (18)
  1. KEPPRA [Suspect]
     Indication: EPILEPSY
     Dosage: 500 MG /D PO
     Route: 048
     Dates: start: 20040110
  2. DIAZEPAM [Concomitant]
  3. ENDOCET [Concomitant]
  4. ULTRACET [Concomitant]
  5. CARISOPRODOL [Concomitant]
  6. INDOMETHACINE ER [Concomitant]
  7. CELEXA [Concomitant]
  8. NABUMETONE [Concomitant]
  9. MIRAPEX [Concomitant]
  10. HYDROCODONE W/ACTAMINOPHEN [Concomitant]
  11. PROTONIX [Concomitant]
  12. LORAZEPAM [Concomitant]
  13. CYCLOBENZAPRINE HCL [Concomitant]
  14. XANAX XR [Concomitant]
  15. LEXAPRO [Concomitant]
  16. RISPERDAL [Concomitant]
  17. SONATA [Concomitant]
  18. SKELAXIN [Concomitant]

REACTIONS (9)
  - ACUTE RESPIRATORY FAILURE [None]
  - ANXIETY [None]
  - CONVULSION [None]
  - FOOT FRACTURE [None]
  - NEURITIS [None]
  - PNEUMONIA [None]
  - ROAD TRAFFIC ACCIDENT [None]
  - SUBARACHNOID HAEMORRHAGE [None]
  - THERAPEUTIC AGENT TOXICITY [None]
